FAERS Safety Report 16429378 (Version 5)
Quarter: 2019Q4

REPORT INFORMATION
  Report Type: Spontaneous
  Country: US (occurrence: US)
  Receive Date: 20190614
  Receipt Date: 20191105
  Transmission Date: 20200122
  Serious: Yes (Other)
  Sender: FDA-Public Use
  Company Number: US-JNJFOC-20190539210

PATIENT
  Sex: Female
  Weight: 78.54 kg

DRUGS (4)
  1. BABY ASPIRIN [Concomitant]
     Active Substance: ASPIRIN
     Route: 048
  2. CARVEDILOL. [Concomitant]
     Active Substance: CARVEDILOL
     Indication: BLOOD PRESSURE MEASUREMENT
     Route: 048
  3. PRAVASTATIN. [Concomitant]
     Active Substance: PRAVASTATIN
     Indication: BLOOD PRESSURE MEASUREMENT
     Route: 048
  4. REMICADE [Suspect]
     Active Substance: INFLIXIMAB
     Indication: CROHN^S DISEASE
     Route: 042
     Dates: start: 2010, end: 20190314

REACTIONS (14)
  - Genital rash [Not Recovered/Not Resolved]
  - Pain [Unknown]
  - Staphylococcal infection [Unknown]
  - Psoriasis [Not Recovered/Not Resolved]
  - Malaise [Unknown]
  - Vision blurred [Unknown]
  - Off label use [Unknown]
  - Product use issue [Unknown]
  - Headache [Unknown]
  - Chills [Unknown]
  - Beta haemolytic streptococcal infection [Unknown]
  - Vulvovaginal inflammation [Not Recovered/Not Resolved]
  - Haematuria [Unknown]
  - Vulvovaginal swelling [Not Recovered/Not Resolved]

NARRATIVE: CASE EVENT DATE: 2010
